FAERS Safety Report 21160662 (Version 1)
Quarter: 2022Q3

REPORT INFORMATION
  Report Type: Report from Study
  Country: US (occurrence: US)
  Receive Date: 20220802
  Receipt Date: 20220802
  Transmission Date: 20221026
  Serious: Yes (Death)
  Sender: FDA-Public Use
  Company Number: US-UPSHER-SMITH LABORATORIES, LLC-2022USL00530

PATIENT
  Sex: Female

DRUGS (1)
  1. TOSYMRA [Suspect]
     Active Substance: SUMATRIPTAN

REACTIONS (1)
  - Death [Fatal]
